FAERS Safety Report 17635119 (Version 1)
Quarter: 2020Q2

REPORT INFORMATION
  Report Type: Spontaneous
  Country: IT (occurrence: IT)
  Receive Date: 20200407
  Receipt Date: 20200407
  Transmission Date: 20200713
  Serious: Yes (Other)
  Sender: FDA-Public Use
  Company Number: IT-CELLTRION INC.-2020IT020267

PATIENT

DRUGS (5)
  1. TRUXIMA [Suspect]
     Active Substance: RITUXIMAB-ABBS
     Dosage: 1000 MG
     Dates: start: 20200228, end: 20200228
  2. BUDESONIDE;FORMOTEROL [Concomitant]
     Active Substance: BUDESONIDE\FORMOTEROL
     Dosage: 2X2 PUFF, AS NECESSARY
  3. APIXABAN [Concomitant]
     Active Substance: APIXABAN
     Dosage: 2 DOSAGE FORM, DIE
  4. TRUXIMA [Suspect]
     Active Substance: RITUXIMAB-ABBS
     Indication: MICROSCOPIC POLYANGIITIS
     Dosage: 1000 MG
     Dates: start: 20200228, end: 20200228
  5. PREDNISONE. [Concomitant]
     Active Substance: PREDNISONE
     Dosage: UNK

REACTIONS (8)
  - Face oedema [Recovering/Resolving]
  - Dyspnoea [Recovering/Resolving]
  - Erythema [Recovering/Resolving]
  - Overdose [Unknown]
  - Nasal pruritus [Recovering/Resolving]
  - Throat irritation [Recovering/Resolving]
  - Eye pruritus [Recovering/Resolving]
  - Hypertensive crisis [Recovering/Resolving]

NARRATIVE: CASE EVENT DATE: 20200228
